FAERS Safety Report 17576947 (Version 1)
Quarter: 2020Q1

REPORT INFORMATION
  Report Type: Spontaneous
  Country: US (occurrence: US)
  Receive Date: 20200324
  Receipt Date: 20200324
  Transmission Date: 20200409
  Serious: Yes (Disabling)
  Sender: FDA-Public Use
  Company Number: None

PATIENT
  Age: 56 Year
  Sex: Female
  Weight: 74.25 kg

DRUGS (6)
  1. LEVOTHYROXIN [Concomitant]
     Active Substance: LEVOTHYROXINE
  2. VITAMINE D [Concomitant]
     Active Substance: CHOLECALCIFEROL
  3. MULTI VITAMINE [Concomitant]
  4. FISH OIL [Concomitant]
     Active Substance: FISH OIL
  5. ATOMOXETINE. [Suspect]
     Active Substance: ATOMOXETINE HYDROCHLORIDE
     Indication: ATTENTION DEFICIT/HYPERACTIVITY DISORDER
     Dosage: ?          QUANTITY:1 TABLET(S);?
     Route: 048
     Dates: start: 20070710, end: 20191230
  6. VITAMINE B [Concomitant]

REACTIONS (12)
  - Syncope [None]
  - Cystitis interstitial [None]
  - Rash [None]
  - Onychoclasis [None]
  - Photosensitivity reaction [None]
  - Immune system disorder [None]
  - Food allergy [None]
  - Cystitis [None]
  - Allergy to arthropod sting [None]
  - Inflammatory bowel disease [None]
  - Inflammation [None]
  - Eczema [None]

NARRATIVE: CASE EVENT DATE: 20191101
